FAERS Safety Report 7643203-5 (Version None)
Quarter: 2011Q3

REPORT INFORMATION
  Report Type: 
  Country: None (occurrence: None)
  Receive Date: 20110729
  Receipt Date: 20110718
  Transmission Date: 20111222
  Serious: No
  Sender: FDA-Public Use
  Company Number: US-BIOGENIDEC-2010BI020557

PATIENT
  Age: 63 Year
  Sex: Female

DRUGS (1)
  1. TYSABRI [Suspect]
     Indication: MULTIPLE SCLEROSIS
     Route: 042
     Dates: start: 20100224, end: 20100519

REACTIONS (7)
  - NECK PAIN [None]
  - NAUSEA [None]
  - PAIN IN EXTREMITY [None]
  - UNDERDOSE [None]
  - DRUG SPECIFIC ANTIBODY PRESENT [None]
  - BACK PAIN [None]
  - VOMITING [None]
